FAERS Safety Report 23527909 (Version 3)
Quarter: 2024Q1

REPORT INFORMATION
  Report Type: Spontaneous
  Country: GB (occurrence: GB)
  Receive Date: 20240215
  Receipt Date: 20240325
  Transmission Date: 20240409
  Serious: Yes (Hospitalization)
  Sender: FDA-Public Use
  Company Number: GB-MYLANLABS-2024M1014207

PATIENT
  Age: 65 Year
  Sex: Female

DRUGS (2)
  1. CLOZARIL [Suspect]
     Active Substance: CLOZAPINE
     Indication: Schizophrenia
     Dosage: UNK
     Route: 048
     Dates: start: 20120618, end: 20240209
  2. CLOZARIL [Suspect]
     Active Substance: CLOZAPINE
     Dosage: UNK
     Route: 048
     Dates: start: 20240213

REACTIONS (4)
  - Respiratory disorder [Unknown]
  - Fall [Unknown]
  - Therapy interrupted [Unknown]
  - Differential white blood cell count abnormal [Unknown]

NARRATIVE: CASE EVENT DATE: 20240209
